FAERS Safety Report 8544137-4 (Version None)
Quarter: 2012Q3

REPORT INFORMATION
  Report Type: 
  Country: None (occurrence: None)
  Receive Date: 20120727
  Receipt Date: 20120719
  Transmission Date: 20120928
  Serious: Yes (Other)
  Sender: FDA-Public Use
  Company Number: CA-JNJFOC-20120711650

PATIENT
  Sex: Female
  Weight: 130 kg

DRUGS (12)
  1. WARFARIN SODIUM [Concomitant]
     Indication: DEEP VEIN THROMBOSIS
     Route: 065
  2. REMICADE [Suspect]
     Route: 042
     Dates: start: 20120105
  3. REMICADE [Suspect]
     Route: 042
     Dates: start: 20120130
  4. REMICADE [Suspect]
     Route: 042
     Dates: start: 20120719
  5. REMICADE [Suspect]
     Route: 042
     Dates: start: 20120524
  6. AZATHIOPRINE [Concomitant]
     Indication: COLITIS ULCERATIVE
     Route: 048
  7. REMICADE [Suspect]
     Route: 042
     Dates: start: 20120327
  8. INSULIN [Suspect]
     Indication: TYPE 1 DIABETES MELLITUS
     Route: 065
  9. IRON [Concomitant]
     Dosage: AS NECESSARY
     Route: 065
  10. SYNTHROID [Concomitant]
     Indication: HYPOTHYROIDISM
     Route: 065
  11. REMICADE [Suspect]
     Indication: COLITIS ULCERATIVE
     Route: 042
     Dates: start: 20111219
  12. EFFEXOR [Concomitant]
     Indication: OBSESSIVE-COMPULSIVE DISORDER
     Route: 065

REACTIONS (1)
  - BLOOD GLUCOSE DECREASED [None]
